FAERS Safety Report 13271734 (Version 1)
Quarter: 2017Q1

REPORT INFORMATION
  Report Type: Not Available
  Country: None (occurrence: None)
  Receive Date: 20170227
  Receipt Date: 20170227
  Transmission Date: 20170428
  Serious: Yes (Other)
  Sender: FDA-Public Use
  Company Number: --2017-KR-000002

PATIENT
  Age: 64 Year
  Sex: Female

DRUGS (3)
  1. METRONIDAZOLE BRAND UNSPECIFIED (VIVIMED) [Suspect]
     Active Substance: METRONIDAZOLE
     Indication: LIVER ABSCESS
     Dosage: UNKNOWN
     Route: 042
  2. CEFTRIAXONE. [Suspect]
     Active Substance: CEFTRIAXONE
     Route: 042
  3. CEFIXIME. [Suspect]
     Active Substance: CEFIXIME
     Indication: LIVER ABSCESS
     Route: 048

REACTIONS (2)
  - Linear IgA disease [None]
  - IgA nephropathy [Recovered/Resolved]
